FAERS Safety Report 7545523-1 (Version None)
Quarter: 2011Q2

REPORT INFORMATION
  Report Type: 
  Country: None (occurrence: None)
  Receive Date: 20110525
  Receipt Date: 20110218
  Transmission Date: 20111010
  Serious: No
  Sender: FDA-Public Use
  Company Number: 324297

PATIENT
  Age: 47 Year
  Sex: Male

DRUGS (2)
  1. VICTOZA [Suspect]
     Indication: TYPE 2 DIABETES MELLITUS
     Dosage: 1.2 MG, QD, SUBCUTANEOUS ; 1.8 MG, QD, SUBCUTANEOUS
     Route: 058
     Dates: start: 20100101
  2. VICTOZA [Suspect]
     Indication: TYPE 2 DIABETES MELLITUS
     Dosage: 1.2 MG, QD, SUBCUTANEOUS ; 1.8 MG, QD, SUBCUTANEOUS
     Route: 058
     Dates: start: 20100101

REACTIONS (6)
  - INCREASED APPETITE [None]
  - MUSCLE SPASMS [None]
  - HEART RATE INCREASED [None]
  - DRUG DOSE OMISSION [None]
  - INSOMNIA [None]
  - FEELING JITTERY [None]
